FAERS Safety Report 9552248 (Version 1)
Quarter: 2013Q3

REPORT INFORMATION
  Report Type: Report from Study
  Country: DE (occurrence: DE)
  Receive Date: 20130925
  Receipt Date: 20130925
  Transmission Date: 20140515
  Serious: Yes (Life-Threatening, Other)
  Sender: FDA-Public Use
  Company Number: DE-ASTELLAS-2013EU008053

PATIENT
  Age: 50 Year
  Sex: Male

DRUGS (6)
  1. PROGRAF [Suspect]
     Indication: IMMUNOSUPPRESSION
     Dosage: UNK
     Route: 048
  2. MYCOPHENOLATE MOFETIL [Suspect]
     Indication: IMMUNOSUPPRESSION
     Dosage: UNK
     Route: 048
  3. DECORTIN [Suspect]
     Indication: IMMUNOSUPPRESSION
     Dosage: UNK
     Route: 048
  4. SIMULECT [Suspect]
     Indication: IMMUNOSUPPRESSION
     Dosage: 20 MG, UNKNOWN/D
     Route: 040
  5. CORTISONE [Suspect]
     Indication: IMMUNOSUPPRESSION
     Dosage: UNK
     Route: 065
  6. URBASON /00049601/ [Suspect]
     Indication: IMMUNOSUPPRESSION
     Dosage: 500 MG, UNKNOWN/D
     Route: 040

REACTIONS (5)
  - Drug ineffective for unapproved indication [Unknown]
  - Disseminated cytomegaloviral infection [Recovered/Resolved]
  - Transplant rejection [Unknown]
  - Ileal fistula [Unknown]
  - Cytomegalovirus infection [Recovered/Resolved]
